FAERS Safety Report 7120050-4 (Version None)
Quarter: 2010Q4

REPORT INFORMATION
  Report Type: 
  Country: None (occurrence: None)
  Receive Date: 20101123
  Receipt Date: 20101117
  Transmission Date: 20110411
  Serious: Yes (Other)
  Sender: FDA-Public Use
  Company Number: NL-PFIZER INC-2010127141

PATIENT
  Age: 67 Year
  Sex: Female

DRUGS (7)
  1. LIPITOR [Suspect]
     Dosage: UNK
  2. ACETYLSALICYLIC ACID [Concomitant]
     Dosage: 80 MG, UNK
     Route: 048
  3. LOPERAMIDE HCL [Concomitant]
     Dosage: 1 MG, UNK
  4. NASONEX [Concomitant]
     Dosage: UNK
  5. OXAZEPAM [Concomitant]
     Dosage: UNK
  6. TEMAZEPAM [Concomitant]
     Dosage: UNK
  7. DIOVAN HCT [Concomitant]
     Dosage: UNK MG, UNK

REACTIONS (2)
  - DYSKINESIA [None]
  - PRURITUS [None]
